FAERS Safety Report 5441674-6 (Version None)
Quarter: 2007Q3

REPORT INFORMATION
  Report Type: 
  Country: None (occurrence: None)
  Receive Date: 20070829
  Receipt Date: 20070813
  Transmission Date: 20080115
  Serious: Yes (Hospitalization, Other)
  Sender: FDA-Public Use
  Company Number: 100#08#2005-00679

PATIENT
  Age: 58 Year
  Sex: Male

DRUGS (7)
  1. SIMVASTATIN [Suspect]
     Indication: HYPERCHOLESTEROLAEMIA
     Route: 048
  2. PRAVASTATIN [Suspect]
     Indication: HYPERCHOLESTEROLAEMIA
  3. AMLODIPINE [Suspect]
     Indication: DRUG USE FOR UNKNOWN INDICATION
  4. WARFARIN SODIUM [Suspect]
     Indication: MITRAL VALVE REPLACEMENT
  5. BISOPROLOL (BISPROLOL) (BISOPROLOL) [Concomitant]
  6. RAMIPRIL (RAMIPRIL) (RAMIPRIL) [Concomitant]
  7. SPIRONOLACTONE (SPIRONOLACTONE0 (SPIRONOLACTONE) [Concomitant]

REACTIONS (8)
  - BLOOD SODIUM DECREASED [None]
  - DRUG INTERACTION INHIBITION [None]
  - GUILLAIN-BARRE SYNDROME [None]
  - HYPERSENSITIVITY [None]
  - INTERNATIONAL NORMALISED RATIO INCREASED [None]
  - NEPHRITIS INTERSTITIAL [None]
  - RECTAL HAEMORRHAGE [None]
  - RENAL FAILURE [None]
